FAERS Safety Report 8129713-5 (Version None)
Quarter: 2012Q1

REPORT INFORMATION
  Report Type: 
  Country: None (occurrence: None)
  Receive Date: 20120210
  Receipt Date: 20120202
  Transmission Date: 20120608
  Serious: Yes (Other)
  Sender: FDA-Public Use
  Company Number: US-ABBOTT-12P-163-0901734-00

PATIENT
  Age: 45 Year
  Sex: Female

DRUGS (4)
  1. NORFLEX [Concomitant]
     Indication: PRODUCT USED FOR UNKNOWN INDICATION
  2. HUMIRA [Suspect]
     Dosage: TWICE WEEKLY, EVERY MONDAY AND THURSDAY
     Dates: start: 20110601
  3. HUMIRA [Suspect]
     Indication: ANKYLOSING SPONDYLITIS
     Dates: end: 20110601
  4. MUSCLE RELAXANTS [Suspect]
     Indication: PRODUCT USED FOR UNKNOWN INDICATION
     Dates: end: 20110901

REACTIONS (8)
  - INJECTION SITE PAIN [None]
  - URTICARIA [None]
  - NASOPHARYNGITIS [None]
  - PARANASAL SINUS HYPERSECRETION [None]
  - BLOOD PRESSURE INCREASED [None]
  - PYREXIA [None]
  - OVARIAN CYST [None]
  - DRUG EFFECT DECREASED [None]
